FAERS Safety Report 13405735 (Version 3)
Quarter: 2017Q2

REPORT INFORMATION
  Report Type: Report from Study
  Country: AU (occurrence: AU)
  Receive Date: 20170405
  Receipt Date: 20170627
  Transmission Date: 20170830
  Serious: Yes (Other)
  Sender: FDA-Public Use
  Company Number: PHHY2017AU049334

PATIENT
  Sex: Female

DRUGS (1)
  1. SANDOSTATIN LAR DEPOT [Suspect]
     Active Substance: OCTREOTIDE ACETATE
     Indication: ACROMEGALY
     Dosage: 10 MG, UNK
     Route: 030

REACTIONS (6)
  - Pulmonary embolism [Recovered/Resolved]
  - Anxiety [Unknown]
  - Lower respiratory tract infection [Unknown]
  - Tension headache [Unknown]
  - Fatigue [Unknown]
  - Alopecia [Unknown]
